FAERS Safety Report 23841195 (Version 1)
Quarter: 2024Q2

REPORT INFORMATION
  Report Type: Spontaneous
  Country: US (occurrence: US)
  Receive Date: 20240510
  Receipt Date: 20240510
  Transmission Date: 20240716
  Serious: Yes (Other)
  Sender: FDA-Public Use
  Company Number: US-DRL-USA-LIT/USA/24/0006761

PATIENT
  Age: 40 Year
  Sex: Male

DRUGS (3)
  1. FENOFIBRATE [Suspect]
     Active Substance: FENOFIBRATE
     Indication: Hypertriglyceridaemia
  2. OMEGA-3 ACIDS [Suspect]
     Active Substance: OMEGA-3 FATTY ACIDS
     Indication: Familial partial lipodystrophy
  3. NIACIN [Suspect]
     Active Substance: NIACIN
     Indication: Familial partial lipodystrophy

REACTIONS (2)
  - Pancreatitis [Unknown]
  - Drug ineffective [Unknown]
